FAERS Safety Report 13155947 (Version 1)
Quarter: 2017Q1

REPORT INFORMATION
  Report Type: Spontaneous
  Country: US (occurrence: US)
  Receive Date: 20170126
  Receipt Date: 20170126
  Transmission Date: 20170428
  Serious: No
  Sender: FDA-Public Use
  Company Number: US-ROCHE-1395687

PATIENT
  Sex: Male
  Weight: 79.45 kg

DRUGS (3)
  1. LEXAPRO [Concomitant]
     Active Substance: ESCITALOPRAM OXALATE
     Indication: SOCIAL ANXIETY DISORDER
     Route: 065
  2. VALIUM [Suspect]
     Active Substance: DIAZEPAM
     Indication: SOCIAL ANXIETY DISORDER
     Route: 065
  3. BUSPAR [Concomitant]
     Active Substance: BUSPIRONE HYDROCHLORIDE
     Indication: SOCIAL ANXIETY DISORDER
     Route: 065

REACTIONS (1)
  - Wrong technique in product usage process [Unknown]
